FAERS Safety Report 17501956 (Version 1)
Quarter: 2020Q1

REPORT INFORMATION
  Report Type: Spontaneous
  Country: US (occurrence: US)
  Receive Date: 20200305
  Receipt Date: 20200305
  Transmission Date: 20200409
  Serious: No
  Sender: FDA-Public Use
  Company Number: None

PATIENT
  Age: 36 Year
  Sex: Female
  Weight: 56.25 kg

DRUGS (11)
  1. MODAFANIL [Concomitant]
     Active Substance: MODAFINIL
  2. FIORICET PRN [Concomitant]
  3. FLEXERIL PRN [Concomitant]
  4. VITAMIN D 2000-5000U DAILY [Concomitant]
  5. DOXYCYCLINE. [Suspect]
     Active Substance: DOXYCYCLINE
     Indication: ACNE
     Dosage: ?          QUANTITY:1 CAPSULE(S);?
     Route: 048
     Dates: start: 20191211, end: 20191217
  6. MAXALT PRN [Concomitant]
  7. TIZANADINE [Concomitant]
     Active Substance: TIZANIDINE
  8. WELLBUTRIN [Concomitant]
     Active Substance: BUPROPION HYDROCHLORIDE
  9. TRAMADOL PRN [Concomitant]
  10. TOPIRAMATE. [Concomitant]
     Active Substance: TOPIRAMATE
  11. ALEVE PRN [Concomitant]

REACTIONS (1)
  - Dysphagia [None]

NARRATIVE: CASE EVENT DATE: 20191214
